FAERS Safety Report 7398945-6 (Version None)
Quarter: 2011Q2

REPORT INFORMATION
  Report Type: 
  Country: None (occurrence: None)
  Receive Date: 20110407
  Receipt Date: 20110404
  Transmission Date: 20111010
  Serious: No
  Sender: FDA-Public Use
  Company Number: US-PFIZER INC-2011074506

PATIENT
  Sex: Female
  Weight: 81.633 kg

DRUGS (2)
  1. PANTOPRAZOLE [Suspect]
     Indication: ULCER
     Dosage: 40 MG, 1X/DAY
     Route: 048
     Dates: end: 20110301
  2. PANTOPRAZOLE [Suspect]
     Indication: DYSPEPSIA

REACTIONS (3)
  - DRUG INEFFECTIVE [None]
  - FATIGUE [None]
  - DIZZINESS [None]
